FAERS Safety Report 23734419 (Version 1)
Quarter: 2024Q2

REPORT INFORMATION
  Report Type: Report from Study
  Country: IT (occurrence: IT)
  Receive Date: 20240412
  Receipt Date: 20240412
  Transmission Date: 20240716
  Serious: Yes (Hospitalization)
  Sender: FDA-Public Use
  Company Number: None

PATIENT

DRUGS (6)
  1. PEGASPARGASE [Suspect]
     Active Substance: PEGASPARGASE
     Indication: Acute lymphocytic leukaemia recurrent
     Dosage: 1485 IU, SINGLE
     Route: 042
     Dates: start: 20231204, end: 20231204
  2. PEGASPARGASE [Suspect]
     Active Substance: PEGASPARGASE
     Dosage: 1485 IU, SINGLE
     Route: 042
     Dates: start: 20231219, end: 20231219
  3. CYTARABINE [Suspect]
     Active Substance: CYTARABINE
     Indication: Acute lymphocytic leukaemia recurrent
     Dosage: 4450 MG, BID
     Route: 042
     Dates: start: 20231216, end: 20231217
  4. METHOTREXATE (METHOTREXATE SODIUM) [Suspect]
     Active Substance: METHOTREXATE SODIUM
     Indication: Acute lymphocytic leukaemia recurrent
     Dosage: 148 MG IV INFUSION. IN 30 MIN. + 1339 MG INFUSION IN 35.5H
     Route: 042
     Dates: start: 20231130, end: 20231201
  5. DECADRON [Concomitant]
     Active Substance: DEXAMETHASONE
     Indication: Acute lymphocytic leukaemia recurrent
     Dosage: 15 MG, QD
     Route: 048
     Dates: start: 20231130, end: 20231205
  6. DECADRON [Concomitant]
     Active Substance: DEXAMETHASONE
     Dosage: 15 MG, QD
     Route: 048
     Dates: start: 20231216, end: 20231220

REACTIONS (2)
  - Pancytopenia [Recovering/Resolving]
  - Febrile neutropenia [Recovered/Resolved]

NARRATIVE: CASE EVENT DATE: 20231207
